FAERS Safety Report 6292881-4 (Version None)
Quarter: 2009Q3

REPORT INFORMATION
  Report Type: 
  Country: None (occurrence: None)
  Receive Date: 20090731
  Receipt Date: 20090728
  Transmission Date: 20100115
  Serious: Yes (Death)
  Sender: FDA-Public Use
  Company Number: PHHY2009CO24309

PATIENT
  Age: 70 Year
  Sex: Male

DRUGS (5)
  1. RASILEZ [Suspect]
     Indication: HYPERTENSION
     Dosage: 1 TABLET (300 MG) DAILY
     Route: 048
     Dates: start: 20090301
  2. AMLODIPINE [Concomitant]
  3. ENALAPRIL MALEATE [Concomitant]
  4. METFORMIN [Concomitant]
  5. ALOPURINOL [Concomitant]

REACTIONS (6)
  - ARTHRITIS [None]
  - DEATH [None]
  - GLOSSITIS [None]
  - HYPOAESTHESIA ORAL [None]
  - INFLAMMATION [None]
  - ORAL DISORDER [None]
